FAERS Safety Report 10034738 (Version 1)
Quarter: 2014Q1

REPORT INFORMATION
  Report Type: Spontaneous
  Country: US (occurrence: None)
  Receive Date: 20140306
  Receipt Date: 20140306
  Transmission Date: 20141002
  Serious: Yes (Other)
  Sender: FDA-Public Use
  Company Number: 163-21880-13010123

PATIENT
  Age: 75 Year
  Sex: Male

DRUGS (18)
  1. REVLIMID [Suspect]
     Indication: PLASMA CELL MYELOMA
     Dosage: 25 MG, 21 IN 21 D, PO
     Route: 048
     Dates: start: 20100421, end: 20100422
  2. ASPIRIN (ACETYLSALICYLIC ACID) [Concomitant]
  3. CYMBALTA [Concomitant]
  4. FENTANYL (FENTANYL) [Concomitant]
  5. FLOMAX SR 24 HR [Concomitant]
  6. MECLIZINE HCL [Concomitant]
  7. MELOXICAM (MELOXICAM) [Concomitant]
  8. OMEPRAZOLE (OMEPRAZOLE) [Concomitant]
  9. SIMVASTATIN (SIMVASTATIN) [Concomitant]
  10. DEXAMETHASONE (DEXAMETHASONE) [Concomitant]
  11. CALCIUM (CALCIUM) [Concomitant]
  12. UROXATRAL [Concomitant]
  13. VITAMIN B12 (CYANOCOBALAMIN) [Concomitant]
  14. VITAMIN B6 (PYRIDOXINE HYDROCHLORIDE) [Concomitant]
  15. WARFARIN SODIUM (WARFARIN SODIUM) [Concomitant]
  16. ZEGERID [Concomitant]
  17. ZOFRAN [Concomitant]
  18. COUMADIN (WARFARIN SODIUM) [Concomitant]

REACTIONS (5)
  - Pancytopenia [None]
  - Platelet count decreased [None]
  - Nausea [None]
  - Vomiting [None]
  - Neutropenia [None]
